FAERS Safety Report 4316214-5 (Version None)
Quarter: 2004Q1

REPORT INFORMATION
  Report Type: 
  Country: None (occurrence: None)
  Receive Date: 20040312
  Receipt Date: 20040309
  Transmission Date: 20041129
  Serious: Yes (Other)
  Sender: FDA-Public Use
  Company Number: DE-GLAXOSMITHKLINE-D0043364A

PATIENT
  Age: 50 Year
  Sex: Female

DRUGS (1)
  1. QUILONUM RETARD [Suspect]
     Dosage: 12TAB SINGLE DOSE
     Route: 048

REACTIONS (4)
  - DIARRHOEA [None]
  - DRUG LEVEL INCREASED [None]
  - SUICIDE ATTEMPT [None]
  - VOMITING [None]
